FAERS Safety Report 19906377 (Version 1)
Quarter: 2021Q4

REPORT INFORMATION
  Report Type: Spontaneous
  Country: US (occurrence: US)
  Receive Date: 20211001
  Receipt Date: 20211001
  Transmission Date: 20220304
  Serious: No
  Sender: FDA-Public Use
  Company Number: US-SA-SAC20210929000967

PATIENT
  Sex: Male
  Weight: 70 kg

DRUGS (12)
  1. DUPIXENT [Suspect]
     Active Substance: DUPILUMAB
     Indication: Idiopathic pulmonary fibrosis
     Dosage: 300 MG, QOW
     Route: 058
  2. DUPIXENT [Suspect]
     Active Substance: DUPILUMAB
     Indication: Interstitial lung disease
  3. DUPIXENT [Suspect]
     Active Substance: DUPILUMAB
     Indication: Illness
  4. VITAMIN D3 [Concomitant]
     Active Substance: CHOLECALCIFEROL
     Dosage: , 000 UNIT SOFTGEL
  5. VITAMINS NOS [Concomitant]
     Active Substance: VITAMINS
  6. LATANOPROST [Concomitant]
     Active Substance: LATANOPROST
  7. OFEV [Concomitant]
     Active Substance: NINTEDANIB
     Dosage: 150MG
  8. PANTOPRAZOLE SODIUM [Concomitant]
     Active Substance: PANTOPRAZOLE SODIUM
  9. SYNTHROID [Concomitant]
     Active Substance: LEVOTHYROXINE SODIUM
  10. ALENDRONATE SODIUM [Concomitant]
     Active Substance: ALENDRONATE SODIUM
  11. SIMVASTATIN [Concomitant]
     Active Substance: SIMVASTATIN
     Dosage: 20MG
  12. OXYGEN [Concomitant]
     Active Substance: OXYGEN

REACTIONS (3)
  - Diarrhoea [Unknown]
  - Hypertension [Unknown]
  - Product use in unapproved indication [Unknown]
